FAERS Safety Report 17351973 (Version 7)
Quarter: 2024Q3

REPORT INFORMATION
  Report Type: Spontaneous
  Country: CA (occurrence: CA)
  Receive Date: 20200130
  Receipt Date: 20240927
  Transmission Date: 20241016
  Serious: Yes (Other)
  Sender: CIPHER
  Company Number: CAN-CERTUSPV-2020-CA-000076

PATIENT
  Age: 30 Year
  Sex: Female
  Weight: 90 kg

DRUGS (8)
  1. ACTEMRA [Suspect]
     Active Substance: TOCILIZUMAB
     Indication: Still^s disease
     Route: 042
  2. ADVIL [Concomitant]
     Active Substance: IBUPROFEN\IBUPROFEN SODIUM
     Indication: Product used for unknown indication
  3. CELEBREX [Concomitant]
     Active Substance: CELECOXIB
     Indication: Product used for unknown indication
  4. CURCUMIN [Concomitant]
     Active Substance: CURCUMIN
     Indication: Product used for unknown indication
  5. DILAUDID [Concomitant]
     Active Substance: HYDROMORPHONE HYDROCHLORIDE
     Indication: Product used for unknown indication
  6. PREDNISONE [Suspect]
     Active Substance: PREDNISONE
     Indication: Product used for unknown indication
  7. TRAMADOL HYDROCHLORIDE [Suspect]
     Active Substance: TRAMADOL HYDROCHLORIDE
     Indication: Product used for unknown indication
  8. CALCIUM [Concomitant]
     Active Substance: CALCIUM
     Indication: Product used for unknown indication

REACTIONS (24)
  - Ear infection [Unknown]
  - Ear pain [Unknown]
  - Fatigue [Unknown]
  - Gastroenteritis viral [Unknown]
  - Joint range of motion decreased [Unknown]
  - Juvenile idiopathic arthritis [Unknown]
  - Pharyngitis streptococcal [Unknown]
  - Rash [Unknown]
  - Scratch [Unknown]
  - Weight decreased [Unknown]
  - Abdominal pain upper [Unknown]
  - Weight increased [Unknown]
  - Blood pressure diastolic abnormal [Unknown]
  - Blood pressure diastolic decreased [Unknown]
  - Nasopharyngitis [Unknown]
  - Postoperative wound infection [Unknown]
  - Body temperature decreased [Unknown]
  - Arthritis [Unknown]
  - Blood pressure diastolic increased [Unknown]
  - Blood pressure increased [Unknown]
  - Cellulitis [Unknown]
  - Constipation [Unknown]
  - Dizziness [Unknown]
  - Drug ineffective [Unknown]
